FAERS Safety Report 9608865 (Version 1)
Quarter: 2013Q4

REPORT INFORMATION
  Report Type: Spontaneous
  Country: CH (occurrence: CH)
  Receive Date: 20131009
  Receipt Date: 20131009
  Transmission Date: 20140711
  Serious: Yes (Other)
  Sender: FDA-Public Use
  Company Number: CH-PFIZER INC-2013285732

PATIENT
  Age: 56 Year
  Sex: Female

DRUGS (2)
  1. VENLAFAXINE PFIZER ER [Suspect]
     Indication: DEPRESSION
     Dosage: 1 DF, 1X/DAY
  2. LYRICA [Suspect]
     Indication: PAIN
     Dosage: AS NEEDED

REACTIONS (1)
  - Coeliac disease [Unknown]
